FAERS Safety Report 8096726-1 (Version None)
Quarter: 2012Q1

REPORT INFORMATION
  Report Type: 
  Country: None (occurrence: None)
  Receive Date: 20120129
  Receipt Date: 20111209
  Transmission Date: 20120608
  Serious: No
  Sender: FDA-Public Use
  Company Number: US-ABBOTT-11P-163-0874732-00

PATIENT
  Sex: Female

DRUGS (10)
  1. HUMIRA [Suspect]
     Dates: start: 20111103
  2. METOPROLOL TARTRATE [Concomitant]
     Indication: ELECTROCARDIOGRAM QT PROLONGED
  3. HUMIRA [Suspect]
     Dosage: DAY 15
  4. HUMIRA [Suspect]
     Indication: CROHN'S DISEASE
     Dosage: INITIAL DOSE
     Dates: start: 20111027
  5. HUMIRA [Suspect]
  6. CELEXA [Concomitant]
     Indication: ANXIETY
     Dosage: DAILY
  7. FAMOTIDINE [Concomitant]
     Indication: GASTROOESOPHAGEAL REFLUX DISEASE
     Dosage: DAILY
  8. MOTRIN [Concomitant]
     Indication: EPICONDYLITIS
     Dosage: BID
     Route: 048
  9. DIPHENOXYLATE [Concomitant]
     Indication: DIARRHOEA
     Dosage: PRN
  10. VITAMIN D [Concomitant]
     Indication: PRODUCT USED FOR UNKNOWN INDICATION

REACTIONS (9)
  - MUSCLE SPASMS [None]
  - EMOTIONAL DISORDER [None]
  - INJECTION SITE HAEMATOMA [None]
  - ANXIETY [None]
  - PAIN [None]
  - COUGH [None]
  - INJECTION SITE PAIN [None]
  - FEELING ABNORMAL [None]
  - POOR QUALITY SLEEP [None]
